FAERS Safety Report 6831814-6 (Version None)
Quarter: 2010Q3

REPORT INFORMATION
  Report Type: 
  Country: None (occurrence: None)
  Receive Date: 20100712
  Receipt Date: 20100630
  Transmission Date: 20110219
  Serious: Yes (Hospitalization)
  Sender: FDA-Public Use
  Company Number: BE-ELI_LILLY_AND_COMPANY-BE201006007926

PATIENT
  Sex: Male
  Weight: 74 kg

DRUGS (18)
  1. PEMETREXED [Suspect]
     Indication: NON-SMALL CELL LUNG CANCER
     Dosage: 500 MG/M2, DAY 1 EVERY 21 DAYS
     Route: 042
     Dates: start: 20100303, end: 20100505
  2. CISPLATIN [Suspect]
     Indication: NON-SMALL CELL LUNG CANCER
     Dosage: 75 MG/M2, DAY 1 EVERY 21 DAYS
     Route: 042
     Dates: start: 20100303, end: 20100505
  3. PLACEBO [Suspect]
     Indication: NON-SMALL CELL LUNG CANCER
     Dosage: UNK, DAY 1 EVERY 21 DAYS
     Route: 042
     Dates: start: 20100615
  4. FOLIC ACID [Concomitant]
     Indication: PROPHYLAXIS
     Dosage: UNK, UNKNOWN
     Route: 065
     Dates: start: 20100226
  5. VITAMIN B-12 [Concomitant]
     Indication: PROPHYLAXIS
     Dosage: UNK, UNKNOWN
     Route: 065
     Dates: start: 20100225
  6. DEXAMETHASONE ACETATE [Concomitant]
     Indication: PROPHYLAXIS
     Dates: start: 20100302
  7. ZOMETA [Concomitant]
     Indication: METASTASES TO BONE
     Dosage: UNK, UNKNOWN
     Route: 065
     Dates: start: 20100304
  8. PAROXETINE HCL [Concomitant]
     Indication: DEPRESSION
     Dosage: UNK, UNKNOWN
     Route: 065
     Dates: start: 20100304
  9. COVERSYL [Concomitant]
     Indication: HYPERTENSION
     Dosage: UNK, UNKNOWN
     Route: 065
     Dates: start: 20090901
  10. SINGULAIR [Concomitant]
     Indication: ASTHMA
     Dosage: UNK, UNKNOWN
     Route: 065
     Dates: start: 20060630
  11. CRESTOR [Concomitant]
     Indication: HYPERCHOLESTEROLAEMIA
     Dosage: UNK, UNKNOWN
     Route: 065
     Dates: start: 20090701
  12. NOCTAMID [Concomitant]
     Indication: INSOMNIA
     Dosage: UNK, UNKNOWN
     Route: 065
     Dates: start: 20030101
  13. CETIRIZINE HCL [Concomitant]
     Indication: HYPERSENSITIVITY
     Dosage: UNK, UNKNOWN
     Route: 065
     Dates: start: 20050101
  14. CALCIUM CARBONATE [Concomitant]
     Indication: METASTASES TO BONE
     Dosage: UNK, UNKNOWN
     Route: 065
     Dates: start: 20100211
  15. DUOVENT [Concomitant]
     Indication: ASTHMA
     Dosage: UNK, UNKNOWN
     Route: 065
     Dates: start: 20100211
  16. SPIRIVA [Concomitant]
     Indication: ASTHMA
     Dosage: UNK, UNKNOWN
     Route: 065
     Dates: start: 20100211
  17. SERETIDE [Concomitant]
     Indication: ASTHMA
     Dosage: UNK, UNKNOWN
     Route: 065
     Dates: start: 20060101
  18. D-CURE [Concomitant]
     Indication: VITAMIN D DECREASED
     Dosage: UNK, UNKNOWN
     Route: 065
     Dates: start: 20100211

REACTIONS (2)
  - ABDOMINAL PAIN LOWER [None]
  - CHRONIC OBSTRUCTIVE PULMONARY DISEASE [None]
